FAERS Safety Report 7929868-9 (Version None)
Quarter: 2011Q4

REPORT INFORMATION
  Report Type: 
  Country: None (occurrence: None)
  Receive Date: 20111121
  Receipt Date: 20111116
  Transmission Date: 20120403
  Serious: No
  Sender: FDA-Public Use
  Company Number: US-PFIZER INC-2011281783

PATIENT
  Sex: Male
  Weight: 86.168 kg

DRUGS (3)
  1. LOTREL [Concomitant]
     Indication: HYPERTENSION
     Dosage: 10 MG, DAILY
  2. LIPITOR [Suspect]
     Indication: CORONARY ARTERY OCCLUSION
     Dosage: 80 MG, DAILY
     Route: 048
     Dates: start: 20110101, end: 20110101
  3. LIPITOR [Suspect]
     Dosage: UNK
     Route: 048
     Dates: start: 20111115

REACTIONS (2)
  - GASTROINTESTINAL PAIN [None]
  - INITIAL INSOMNIA [None]
